FAERS Safety Report 7077059-9 (Version None)
Quarter: 2010Q4

REPORT INFORMATION
  Report Type: 
  Country: None (occurrence: None)
  Receive Date: 20101101
  Receipt Date: 20101019
  Transmission Date: 20110411
  Serious: Yes (Other)
  Sender: FDA-Public Use
  Company Number: US-ELI_LILLY_AND_COMPANY-US201009005908

PATIENT
  Sex: Female

DRUGS (5)
  1. FORTEO [Suspect]
     Indication: OSTEOPOROSIS
     Dosage: UNK, UNKNOWN
     Dates: start: 20100625
  2. CORGARD [Concomitant]
  3. EFFEXOR XR [Concomitant]
  4. ZYPREXA [Concomitant]
  5. CALCIUM WITH VITAMIN D [Concomitant]

REACTIONS (2)
  - ASTHENIA [None]
  - FIBROSARCOMA [None]
